FAERS Safety Report 12776205 (Version 1)
Quarter: 2016Q3

REPORT INFORMATION
  Report Type: Spontaneous
  Country: US (occurrence: US)
  Receive Date: 20160923
  Receipt Date: 20160923
  Transmission Date: 20161109
  Serious: Yes (Other)
  Sender: FDA-Public Use
  Company Number: US-UNICHEM LABORATORIES LIMITED-UCM201609-000215

PATIENT

DRUGS (1)
  1. HYDROCHLOROTHIAZIDE. [Suspect]
     Active Substance: HYDROCHLOROTHIAZIDE
     Indication: BLOOD PRESSURE FLUCTUATION

REACTIONS (5)
  - Haematochezia [Unknown]
  - Injury [Unknown]
  - Product use issue [Unknown]
  - Abdominal pain upper [Unknown]
  - Rash [Unknown]
